FAERS Safety Report 26157669 (Version 1)
Quarter: 2025Q4

REPORT INFORMATION
  Report Type: Spontaneous
  Country: US (occurrence: None)
  Receive Date: 20251212
  Receipt Date: 20251212
  Transmission Date: 20260118
  Serious: Yes (Disabling)
  Sender: FDA-CTU
  Company Number: None

PATIENT
  Age: 76 Year
  Sex: Female
  Weight: 72 kg

DRUGS (7)
  1. ACETYLCYSTEINE [Suspect]
     Active Substance: ACETYLCYSTEINE
     Indication: Asthma
     Dosage: FREQUENCY : TWICE A DAY?OTHER ROUTE : NEBULIZER WITH ALBUTERNOL SOLUTION
     Route: 050
     Dates: start: 20250401, end: 20250905
  2. ALBUTEROL [Concomitant]
     Active Substance: ALBUTEROL
  3. SINGULAIR [Concomitant]
     Active Substance: MONTELUKAST SODIUM
  4. ALVESCO [Concomitant]
     Active Substance: CICLESONIDE
  5. PROBIOTICS NOS [Concomitant]
     Active Substance: PROBIOTICS NOS
  6. VITAMIN D [Concomitant]
     Active Substance: VITAMIN D NOS
  7. VITAMIN C [Concomitant]
     Active Substance: ASCORBIC ACID

REACTIONS (7)
  - Depression [None]
  - Thirst [None]
  - Anxiety [None]
  - Sleep terror [None]
  - Panic attack [None]
  - Frustration tolerance decreased [None]
  - Therapy cessation [None]

NARRATIVE: CASE EVENT DATE: 20250905
